FAERS Safety Report 4984344-0 (Version None)
Quarter: 2006Q2

REPORT INFORMATION
  Report Type: 
  Country: None (occurrence: None)
  Receive Date: 20060420
  Receipt Date: 20060404
  Transmission Date: 20061013
  Serious: Yes (Hospitalization)
  Sender: FDA-Public Use
  Company Number: DSA_28020_2006

PATIENT
  Age: 85 Year
  Sex: Male

DRUGS (5)
  1. ENALAPRIL MALEATE [Suspect]
     Indication: HYPERTENSION
     Dosage: 20 MG Q DAY PO
     Route: 048
     Dates: start: 20030101, end: 20060101
  2. FUROSEMIDE [Suspect]
     Dosage: 80 MG Q DAY PO
     Route: 048
     Dates: start: 20030101, end: 20060104
  3. ALLOPURINOL [Concomitant]
  4. ASPIRIN [Concomitant]
  5. MOLSIDOMINE [Concomitant]

REACTIONS (3)
  - CHRONIC OBSTRUCTIVE PULMONARY DISEASE [None]
  - CONDITION AGGRAVATED [None]
  - RENAL FAILURE ACUTE [None]
